FAERS Safety Report 25019084 (Version 1)
Quarter: 2025Q1

REPORT INFORMATION
  Report Type: Spontaneous
  Country: US (occurrence: None)
  Receive Date: 20250227
  Receipt Date: 20250227
  Transmission Date: 20250409
  Serious: Yes (Other)
  Sender: FDA-CTU
  Company Number: None

PATIENT
  Age: 74 Year
  Sex: Male

DRUGS (1)
  1. OCTREOTIDE [Suspect]
     Active Substance: OCTREOTIDE
     Route: 040

REACTIONS (7)
  - Dyspnoea [None]
  - Depressed level of consciousness [None]
  - Hypotension [None]
  - Bradycardia [None]
  - Swollen tongue [None]
  - Lip swelling [None]
  - Infusion related reaction [None]

NARRATIVE: CASE EVENT DATE: 20250222
